FAERS Safety Report 21657021 (Version 2)
Quarter: 2023Q2

REPORT INFORMATION
  Report Type: Spontaneous
  Country: JP (occurrence: JP)
  Receive Date: 20221129
  Receipt Date: 20230425
  Transmission Date: 20230722
  Serious: Yes (Life-Threatening, Hospitalization, Disabling, Other)
  Sender: FDA-Public Use
  Company Number: JP-BAYER-2022A160442

PATIENT
  Age: 49 Year
  Sex: Female
  Weight: 51 kg

DRUGS (4)
  1. MIRENA [Suspect]
     Active Substance: LEVONORGESTREL
     Indication: Dysmenorrhoea
     Dosage: 20?G/DAY
     Route: 015
     Dates: start: 20221029, end: 20221110
  2. TRAMADOL [Suspect]
     Active Substance: TRAMADOL
     Dosage: UNK
     Route: 048
  3. ATROPINE SULFATE [Concomitant]
     Active Substance: ATROPINE SULFATE
     Indication: Anaesthetic premedication
     Dosage: 0.5 MG, ONCE
     Route: 042
     Dates: start: 20221029, end: 20221029
  4. THIAMYLAL SODIUM [Concomitant]
     Active Substance: THIAMYLAL SODIUM
     Indication: General anaesthesia
     Dosage: 0.5 G, ONCE
     Route: 042
     Dates: start: 20221029, end: 20221029

REACTIONS (14)
  - Mechanical ileus [Recovering/Resolving]
  - Abdominal tenderness [Not Recovered/Not Resolved]
  - Peritonitis [None]
  - Salpingitis [Not Recovered/Not Resolved]
  - Pelvic abscess [None]
  - Vaginal discharge [None]
  - Pyrexia [None]
  - Intermenstrual bleeding [None]
  - Oedema peripheral [None]
  - Abdominal distension [None]
  - Vomiting [None]
  - Diarrhoea [None]
  - Nausea [None]
  - Complication of device insertion [None]

NARRATIVE: CASE EVENT DATE: 20221028
